FAERS Safety Report 24315766 (Version 1)
Quarter: 2024Q3

REPORT INFORMATION
  Report Type: Report from Study
  Country: BR (occurrence: BR)
  Receive Date: 20240913
  Receipt Date: 20240913
  Transmission Date: 20241016
  Serious: Yes (Other)
  Sender: TAKEDA
  Company Number: BR-TAKEDA-2024TUS089766

PATIENT
  Sex: Female

DRUGS (1)
  1. VEDOLIZUMAB [Suspect]
     Active Substance: VEDOLIZUMAB
     Indication: Colitis ulcerative
     Dosage: 300 MILLIGRAM
     Route: 042

REACTIONS (13)
  - Haematochezia [Unknown]
  - Pain [Unknown]
  - Peripheral swelling [Unknown]
  - Swelling face [Unknown]
  - Insomnia [Unknown]
  - Gastrointestinal disorder [Unknown]
  - Abdominal pain upper [Unknown]
  - Discouragement [Unknown]
  - Depressed mood [Unknown]
  - Weight fluctuation [Unknown]
  - Rectal tenesmus [Unknown]
  - Diarrhoea [Unknown]
  - Fatigue [Unknown]
